FAERS Safety Report 17419644 (Version 1)
Quarter: 2020Q1

REPORT INFORMATION
  Report Type: Spontaneous
  Country: CN (occurrence: CN)
  Receive Date: 20200214
  Receipt Date: 20200214
  Transmission Date: 20200409
  Serious: Yes (Other)
  Sender: FDA-Public Use
  Company Number: CN-IGSA-SR10009898

PATIENT
  Age: 64 Year
  Sex: Male
  Weight: 48 kg

DRUGS (3)
  1. HUMAN ALBUMIN GRIFOLS 20% [Suspect]
     Active Substance: ALBUMIN HUMAN
     Indication: PRODUCT USED FOR UNKNOWN INDICATION
     Dosage: 10 G, TOTAL
     Route: 041
     Dates: start: 20200102, end: 20200103
  2. BOZHI GLYCOPEPTIDE INJECTION [Suspect]
     Active Substance: HERBALS
     Indication: ADJUVANT THERAPY
     Dosage: 4 ML, QD
     Route: 041
     Dates: start: 20191220, end: 20200105
  3. POLYENE PHOSPHATIDYLCHOLINE [Suspect]
     Active Substance: PHOSPHOLIPID
     Indication: PRODUCT USED FOR UNKNOWN INDICATION
     Dosage: 465 MG, QD
     Route: 041
     Dates: start: 20191225, end: 20200105

REACTIONS (6)
  - Lip blister [Recovering/Resolving]
  - Face oedema [Recovering/Resolving]
  - Erythema multiforme [Recovering/Resolving]
  - Stevens-Johnson syndrome [Recovering/Resolving]
  - Rash [Recovering/Resolving]
  - Oral mucosal blistering [Recovering/Resolving]

NARRATIVE: CASE EVENT DATE: 20200102
